FAERS Safety Report 17025696 (Version 1)
Quarter: 2019Q4

REPORT INFORMATION
  Report Type: Spontaneous
  Country: TW (occurrence: TW)
  Receive Date: 20191113
  Receipt Date: 20191113
  Transmission Date: 20200122
  Serious: Yes (Death, Hospitalization)
  Sender: FDA-Public Use
  Company Number: TW-CELGENEUS-TWN-20191007278

PATIENT
  Age: 80 Year
  Sex: Male
  Weight: 62.2 kg

DRUGS (62)
  1. AZACITIDINE. [Suspect]
     Active Substance: AZACITIDINE
     Indication: ACUTE MYELOID LEUKAEMIA
     Dosage: 75 MILLIGRAM/SQ. METER
     Route: 058
     Dates: start: 20190730, end: 20191001
  2. FILGRASTIM(GCSF) [Concomitant]
     Indication: WHITE BLOOD CELL COUNT DECREASED
     Dosage: 300 MICROGRAM
     Route: 058
     Dates: start: 20190919, end: 20190920
  3. CHLORZOXAZONE150MG+ACETAMINOPHEN250MG+CAFFEINE20MG+THIAMINE7.7MG(SOMA) [Concomitant]
     Indication: POST HERPETIC NEURALGIA
     Dosage: 3 DOSAGE FORMS
     Route: 048
     Dates: start: 20190912, end: 20190929
  4. CHLORZOXAZONE150MG+ACETAMINOPHEN250MG+CAFFEINE20MG+THIAMINE7.7MG(SOMA) [Concomitant]
     Dosage: 4 DOSAGE FORMS
     Route: 048
     Dates: start: 20191002, end: 20191004
  5. FUSIDIC ACID (FUSIDIC ACID) [Concomitant]
     Indication: POST HERPETIC NEURALGIA
     Route: 061
     Dates: start: 20190920, end: 20190920
  6. TOLIZOLE [Concomitant]
     Dosage: 1500 MILLIGRAM
     Route: 048
     Dates: start: 20191018, end: 20191024
  7. SMECTITES [Concomitant]
     Dosage: 3 GRAM
     Route: 048
     Dates: start: 20191010, end: 20191013
  8. HYDROCORTISONE SOD. SUCCINATE (HYDROCORTISONE^CYH^) [Concomitant]
     Indication: ALLERGY PROPHYLAXIS
     Dosage: 100 MILLIGRAM
     Route: 040
     Dates: start: 20190920, end: 20191002
  9. ACETYLCYSTEINE (ACC600 EFFERVESCENT TAB) [Concomitant]
     Indication: COUGH
     Dosage: 600 MILLIGRAM
     Route: 048
     Dates: start: 20191003, end: 20191003
  10. CANCIDAS [Concomitant]
     Active Substance: CASPOFUNGIN ACETATE
     Dosage: 3000 MILLIGRAM
     Route: 041
     Dates: start: 20191017, end: 20191028
  11. TRANEXAM [Concomitant]
     Active Substance: TRANEXAMIC ACID
     Indication: HAEMOPTYSIS
     Dosage: 750 MILLIGRAM
     Route: 048
     Dates: start: 20191019, end: 20191024
  12. ALDACTIN [Concomitant]
     Dosage: 12.5 MILLIGRAM
     Route: 048
     Dates: start: 20191020
  13. SENNAPUR [Concomitant]
     Indication: CONSTIPATION
     Dosage: 12.5 MILLIGRAM
     Route: 048
     Dates: start: 20191024
  14. FILGRASTIM(GCSF) [Concomitant]
     Dosage: 300 MICROGRAM
     Route: 058
     Dates: start: 20191004
  15. FILGRASTIM(GCSF) [Concomitant]
     Dosage: 300 MICROGRAM
     Route: 058
     Dates: start: 20191005, end: 20191007
  16. FILGRASTIM(GCSF) [Concomitant]
     Dosage: 300 MICROGRAM
     Route: 058
     Dates: start: 20191008, end: 20191021
  17. RANITIDINE. [Concomitant]
     Active Substance: RANITIDINE
     Indication: PROPHYLAXIS
     Dosage: 300 MILLIGRAM
     Route: 048
     Dates: start: 20190912, end: 20190921
  18. PIPERACILLIN+TAZOBACTAM (TAZOCIN) [Concomitant]
     Indication: PNEUMONIA
     Dosage: 4.5 GRAM
     Route: 041
     Dates: start: 20191003, end: 20191003
  19. PIPERACILLIN+TAZOBACTAM (TAZOCIN) [Concomitant]
     Indication: FEBRILE NEUTROPENIA
     Dosage: 18 GRAM
     Route: 041
     Dates: start: 20191004, end: 20191007
  20. OXETHAZAINE 5MG+ POLYMIGEL(AL(OH)3 + CACO3+MGCO3) 244MG (STROCAIN) [Concomitant]
     Indication: PROPHYLAXIS
     Dosage: 15 MILLIGRAM
     Route: 048
     Dates: start: 20190923, end: 20191001
  21. NYSTATIN (MYCOSTATIN ORAL SUSPENSION) [Concomitant]
     Indication: MUCOSAL INFECTION
     Dosage: 24 MILLIGRAM
     Route: 048
     Dates: start: 20190912, end: 20190921
  22. ALBUMIN [Concomitant]
     Active Substance: ALBUMIN HUMAN
     Indication: OEDEMA PERIPHERAL
     Route: 041
     Dates: start: 20191021, end: 20191021
  23. POTASSIUM GLUCONATE [Concomitant]
     Active Substance: POTASSIUM GLUCONATE
     Dosage: 45 MILLILITER
     Route: 048
     Dates: start: 20191016, end: 20191017
  24. IMIPENEM 500 MG + CILASTATIN 500 MG [Concomitant]
     Indication: FEBRILE NEUTROPENIA
     Dosage: 2000 MILLIGRAM
     Route: 041
     Dates: start: 20190916, end: 20190921
  25. FILGRASTIM(GCSF) [Concomitant]
     Dosage: 300 MICROGRAM
     Route: 058
     Dates: start: 20191007
  26. CANCIDAS [Concomitant]
     Active Substance: CASPOFUNGIN ACETATE
     Indication: FUNGAL INFECTION
     Dosage: 3000 MILLIGRAM
     Route: 041
     Dates: start: 20191016, end: 20191016
  27. KASCOAL [Concomitant]
     Indication: WHEEZING
     Dosage: 120 MILLIGRAM
     Route: 048
     Dates: start: 20191005, end: 20191016
  28. POTASSIUM GLUCONATE [Concomitant]
     Active Substance: POTASSIUM GLUCONATE
     Dosage: 45 MILLILITER
     Route: 048
     Dates: start: 20191017, end: 20191018
  29. FILGRASTIM(GCSF) [Concomitant]
     Indication: FEBRILE NEUTROPENIA
     Route: 065
     Dates: start: 20190925, end: 20191004
  30. FILGRASTIM(GCSF) [Concomitant]
     Dosage: 300 MICROGRAM
     Route: 058
     Dates: start: 20191022, end: 20191023
  31. DEXTROMETHORPHAN 20MG+POT.CRESOLSULFONATE 90MG+LYSOZYME20MG(MEDICON A) [Concomitant]
     Indication: COUGH
     Dosage: 15 MILLIGRAM
     Route: 048
     Dates: start: 20191003, end: 20191003
  32. TOLIZOLE [Concomitant]
     Indication: COLITIS
     Dosage: 2000 MILLIGRAM
     Route: 048
     Dates: start: 20191014, end: 20191018
  33. RASITOL [Concomitant]
     Indication: OEDEMA PERIPHERAL
     Dosage: 10 AND 20 MG ONCE
     Route: 040
     Dates: start: 20191019, end: 20191019
  34. SMECTITES [Concomitant]
     Indication: DIARRHOEA
     Route: 048
     Dates: start: 20191009, end: 20191009
  35. KASCOAL [Concomitant]
     Indication: ABDOMINAL DISCOMFORT
     Dosage: 120 MILLIGRAM
     Route: 048
     Dates: start: 20191024
  36. DULCOLAX NOS [Concomitant]
     Active Substance: BISACODYL OR DOCUSATE SODIUM
     Indication: CONSTIPATION
     Dosage: 5 MILLIGRAM
     Route: 048
     Dates: start: 20191021, end: 20191021
  37. POTASSIUM GLUCONATE [Concomitant]
     Active Substance: POTASSIUM GLUCONATE
     Indication: HYPOKALAEMIA
     Route: 048
     Dates: start: 20191016
  38. POTASSIUM GLUCONATE [Concomitant]
     Active Substance: POTASSIUM GLUCONATE
     Dosage: 5355 MILLIGRAM
     Route: 048
     Dates: start: 20191007, end: 20191010
  39. METOCLOPRAMIDE (PRIMPERAN) [Concomitant]
     Indication: VOMITING
     Dosage: 15 MILLIGRAM
     Route: 048
     Dates: start: 20190912, end: 20191016
  40. HYDROCORTISONE SOD. SUCCINATE (HYDROCORTISONE^CYH^) [Concomitant]
     Dosage: 100 MILLIGRAM
     Route: 040
     Dates: start: 20191017, end: 20191017
  41. HYDROCORTISONE SOD. SUCCINATE (HYDROCORTISONE^CYH^) [Concomitant]
     Dosage: 100 MILLIGRAM
     Route: 040
     Dates: start: 20191017, end: 20191018
  42. DIPHENHYDRAMINE (DIPHENHYDRAMINE) [Concomitant]
     Active Substance: DIPHENHYDRAMINE
     Dosage: 30 MILLIGRAM
     Route: 040
     Dates: start: 20191021
  43. ACETYLCYSTEINE (ACC600 EFFERVESCENT TAB) [Concomitant]
     Dosage: 600 MILLIGRAM
     Route: 048
     Dates: start: 20191004, end: 20191017
  44. ALBUMIN [Concomitant]
     Active Substance: ALBUMIN HUMAN
     Dosage: 50 MILLILITER
     Route: 041
     Dates: start: 20191022, end: 20191024
  45. POTASSIUM GLUCONATE [Concomitant]
     Active Substance: POTASSIUM GLUCONATE
     Route: 048
     Dates: start: 20191016, end: 20191016
  46. ALDACTIN [Concomitant]
     Indication: OEDEMA PERIPHERAL
     Dosage: 12.5 MILLIGRAM
     Route: 048
     Dates: start: 20191017, end: 20191017
  47. IMIPENEM 500 MG + CILASTATIN 500 MG [Concomitant]
     Indication: PNEUMONIA
     Dosage: 2000 MILLIGRAM
     Route: 041
     Dates: start: 20191007, end: 20191011
  48. METOCLOPRAMIDE (PRIMPERAN) [Concomitant]
     Indication: NAUSEA
     Dosage: 15 MILLIGRAM
     Route: 048
     Dates: start: 20191024
  49. DEXTROMETHORPHAN 20MG+POT.CRESOLSULFONATE 90MG+LYSOZYME20MG(MEDICON A) [Concomitant]
     Indication: COUGH
     Dosage: 45 MILLIGRAM
     Route: 048
     Dates: start: 20190912, end: 20190929
  50. DIPHENHYDRAMINE (DIPHENHYDRAMINE) [Concomitant]
     Active Substance: DIPHENHYDRAMINE
     Dosage: 30 MILLIGRAM
     Route: 040
     Dates: start: 20191023
  51. TRAMADOL 37.5MG+ACETAMINOPHEN 325MG [Concomitant]
     Indication: POST HERPETIC NEURALGIA
     Dosage: 3 DOSAGE FORMS
     Route: 048
     Dates: start: 20190830, end: 20190925
  52. AMBROXOL (MUBROXOL) [Concomitant]
     Indication: COUGH
     Dosage: 90 MILLIGRAM
     Route: 048
     Dates: start: 20190912, end: 20190929
  53. LOWEN [Concomitant]
     Indication: INSOMNIA
     Route: 048
     Dates: start: 20191019, end: 20191022
  54. PRACINOSTAT [Concomitant]
     Active Substance: PRACINOSTAT
     Indication: ACUTE MYELOID LEUKAEMIA
     Dosage: 60 MILLIGRAM
     Route: 048
     Dates: start: 20190730, end: 20191004
  55. IMIPENEM 500 MG + CILASTATIN 500 MG [Concomitant]
     Dosage: 2000 MILLIGRAM
     Route: 041
     Dates: start: 20191011, end: 20191024
  56. DEXTROMETHORPHAN 20MG+POT.CRESOLSULFONATE 90MG+LYSOZYME20MG(MEDICON A) [Concomitant]
     Dosage: 45 MILLIGRAM
     Route: 048
     Dates: start: 20191004, end: 20191016
  57. DIPHENHYDRAMINE (DIPHENHYDRAMINE) [Concomitant]
     Active Substance: DIPHENHYDRAMINE
     Indication: ALLERGY PROPHYLAXIS
     Dosage: 30 MILLIGRAM
     Route: 040
     Dates: start: 20190923, end: 20191002
  58. DIPHENHYDRAMINE (DIPHENHYDRAMINE) [Concomitant]
     Active Substance: DIPHENHYDRAMINE
     Dosage: 30 MILLIGRAM
     Route: 040
     Dates: start: 20191030
  59. MAGNESIUM OXIDE (MAGNESIUM OXIDE(MGO) [Concomitant]
     Indication: ABDOMINAL DISCOMFORT
     Dosage: 750 MILLIGRAM
     Route: 048
     Dates: start: 20191002, end: 20191005
  60. AMBROXOL (MUBROXOL) [Concomitant]
     Indication: PNEUMONIA
     Dosage: 120 MILLIGRAM
     Route: 048
     Dates: start: 20191017
  61. FAMCICLOVIR (FAMVIR) [Concomitant]
     Indication: POST HERPETIC NEURALGIA
     Dosage: 750 MILLIGRAM
     Route: 048
     Dates: start: 20190912, end: 20190928
  62. POTASSIUM CHLORIDE. [Concomitant]
     Active Substance: POTASSIUM CHLORIDE
     Indication: HYPOKALAEMIA
     Route: 041
     Dates: start: 20191016, end: 20191017

REACTIONS (2)
  - Pneumonia [Fatal]
  - Febrile neutropenia [Not Recovered/Not Resolved]

NARRATIVE: CASE EVENT DATE: 20191004
